FAERS Safety Report 14286191 (Version 1)
Quarter: 2017Q4

REPORT INFORMATION
  Report Type: Spontaneous
  Country: US (occurrence: US)
  Receive Date: 20171214
  Receipt Date: 20171214
  Transmission Date: 20180321
  Serious: No
  Sender: FDA-Public Use
  Company Number: US-ASTELLAS-2017US028346

PATIENT
  Age: 57 Year
  Sex: Female

DRUGS (2)
  1. TARCEVA [Suspect]
     Active Substance: ERLOTINIB HYDROCHLORIDE
     Indication: BRONCHIAL NEOPLASM
     Route: 048
     Dates: start: 20160111, end: 20170124
  2. TARCEVA [Suspect]
     Active Substance: ERLOTINIB HYDROCHLORIDE
     Indication: LUNG NEOPLASM MALIGNANT
     Route: 048
     Dates: start: 20170207

REACTIONS (6)
  - Nail disorder [Unknown]
  - Secretion discharge [Unknown]
  - Dyspnoea [Unknown]
  - Peripheral swelling [Unknown]
  - Skin disorder [Unknown]
  - Cough [Unknown]

NARRATIVE: CASE EVENT DATE: 20170124
